FAERS Safety Report 10443820 (Version 7)
Quarter: 2015Q1

REPORT INFORMATION
  Report Type: Spontaneous
  Country: US (occurrence: US)
  Receive Date: 20140910
  Receipt Date: 20150120
  Transmission Date: 20150720
  Serious: Yes (Death, Hospitalization)
  Sender: FDA-Public Use
  Company Number: US-JNJFOC-20140905884

PATIENT
  Age: 76 Year
  Sex: Female
  Weight: 63.5 kg

DRUGS (17)
  1. XARELTO [Suspect]
     Active Substance: RIVAROXABAN
     Indication: CEREBRAL INFARCTION
     Route: 048
     Dates: end: 20140526
  2. ASPIRIN. [Suspect]
     Active Substance: ASPIRIN
     Indication: PRODUCT USED FOR UNKNOWN INDICATION
     Route: 048
     Dates: start: 20100621
  3. VITAMIN C [Concomitant]
     Active Substance: ASCORBIC ACID
     Route: 048
     Dates: start: 20060712
  4. NITROGLYCERINE [Concomitant]
     Active Substance: NITROGLYCERIN
     Route: 060
     Dates: start: 20100416
  5. XARELTO [Suspect]
     Active Substance: RIVAROXABAN
     Indication: TRANSIENT ISCHAEMIC ATTACK
     Route: 048
     Dates: end: 20140526
  6. MELATONIN [Concomitant]
     Active Substance: MELATONIN
     Route: 048
     Dates: start: 20121001
  7. MAGNESIUM GLUCONATE [Concomitant]
     Active Substance: MAGNESIUM GLUCONATE
     Route: 048
     Dates: start: 20110923
  8. XARELTO [Suspect]
     Active Substance: RIVAROXABAN
     Indication: ANGINA PECTORIS
     Route: 048
     Dates: end: 20140526
  9. SIMVASTATIN. [Concomitant]
     Active Substance: SIMVASTATIN
     Route: 048
     Dates: start: 20101229
  10. LOSARTAN POTASSIUM. [Concomitant]
     Active Substance: LOSARTAN POTASSIUM
     Route: 048
     Dates: start: 20110429
  11. ALLOPURINOL. [Concomitant]
     Active Substance: ALLOPURINOL
     Route: 048
     Dates: start: 20091216
  12. CENTRUM SILVER [Concomitant]
     Active Substance: VITAMINS
     Route: 048
     Dates: start: 20060712
  13. ICAPS [Concomitant]
     Active Substance: MINERALS\VITAMINS
     Route: 048
     Dates: start: 20121001
  14. METHYLSULFONYLMETHANE [Concomitant]
     Active Substance: DIMETHYL SULFONE
     Route: 048
     Dates: start: 20060712
  15. CALCIUM 600 AND VITAMIN D [Concomitant]
     Route: 048
     Dates: start: 20060712
  16. AMLODIPINE BESYLATE. [Concomitant]
     Active Substance: AMLODIPINE BESYLATE
     Route: 048
     Dates: start: 20130719
  17. HYDROCHLOROTHIAZIDE. [Concomitant]
     Active Substance: HYDROCHLOROTHIAZIDE
     Route: 048
     Dates: start: 20100421

REACTIONS (5)
  - Injury [Fatal]
  - Off label use [Unknown]
  - Gastrointestinal haemorrhage [Not Recovered/Not Resolved]
  - Swelling [Unknown]
  - Urinary tract infection [Not Recovered/Not Resolved]

NARRATIVE: CASE EVENT DATE: 20140417
